FAERS Safety Report 4397953-7 (Version None)
Quarter: 2004Q3

REPORT INFORMATION
  Report Type: 
  Country: None (occurrence: None)
  Receive Date: 20040713
  Receipt Date: 20040629
  Transmission Date: 20050211
  Serious: No
  Sender: FDA-Public Use
  Company Number: 04P-087-0265306-00

PATIENT
  Age: 6 Month
  Sex: Male

DRUGS (6)
  1. SEVOFLURANE [Suspect]
     Indication: ANAESTHESIA
     Dosage: INHALATION
     Route: 055
  2. FENTANYL [Concomitant]
  3. NITROUS OXIDE [Concomitant]
  4. MIDAZOLAM [Concomitant]
  5. VECURONIUM BROMIDE [Concomitant]
  6. PROPOFOL [Concomitant]

REACTIONS (8)
  - ACIDOSIS [None]
  - ANAESTHETIC COMPLICATION [None]
  - CARDIAC ARREST [None]
  - DEVELOPMENTAL DELAY [None]
  - HYPERKALAEMIA [None]
  - HYPERTHERMIA MALIGNANT [None]
  - POST PROCEDURAL COMPLICATION [None]
  - RESPIRATORY FAILURE [None]
